FAERS Safety Report 20005523 (Version 1)
Quarter: 2021Q4

REPORT INFORMATION
  Report Type: Spontaneous
  Country: US (occurrence: US)
  Receive Date: 20211028
  Receipt Date: 20211028
  Transmission Date: 20220303
  Serious: No
  Sender: FDA-Public Use
  Company Number: None

PATIENT
  Age: 46 Year
  Sex: Male
  Weight: 110.25 kg

DRUGS (1)
  1. GAMMAGARD [Suspect]
     Active Substance: HUMAN IMMUNOGLOBULIN G
     Indication: Chronic inflammatory demyelinating polyradiculoneuropathy
     Dosage: ?          OTHER FREQUENCY:DAILY FOR 2 DAYS;
     Route: 042
     Dates: start: 20211027, end: 20211027

REACTIONS (5)
  - Eye pain [None]
  - Discomfort [None]
  - Swelling face [None]
  - Acute stress disorder [None]
  - Meningitis aseptic [None]

NARRATIVE: CASE EVENT DATE: 20211027
